FAERS Safety Report 20435656 (Version 2)
Quarter: 2022Q1

REPORT INFORMATION
  Report Type: Report from Study
  Country: US (occurrence: US)
  Receive Date: 20220207
  Receipt Date: 20220228
  Transmission Date: 20220423
  Serious: Yes (Hospitalization, Disabling, Other)
  Sender: FDA-Public Use
  Company Number: US-JNJFOC-20220151842

PATIENT
  Age: 69 Year
  Sex: Female

DRUGS (3)
  1. SELEXIPAG [Suspect]
     Active Substance: SELEXIPAG
     Indication: Pulmonary arterial hypertension
     Route: 048
     Dates: start: 20211005
  2. SELEXIPAG [Suspect]
     Active Substance: SELEXIPAG
     Dosage: TAKE BY MOUTH TWICE DAILY AND INCREASE BY 200MCG PER DOSE EVERY 2-4 WEEKS AS DIRECTED TO THE HIGHEST
     Route: 048
     Dates: start: 20211005
  3. MACITENTAN [Suspect]
     Active Substance: MACITENTAN
     Indication: Pulmonary arterial hypertension
     Route: 048
     Dates: start: 20201225

REACTIONS (3)
  - Faeces soft [Unknown]
  - Myalgia [Unknown]
  - Fluid retention [Unknown]
